FAERS Safety Report 8449465-9 (Version None)
Quarter: 2012Q2

REPORT INFORMATION
  Report Type: 
  Country: None (occurrence: None)
  Receive Date: 20120619
  Receipt Date: 20120614
  Transmission Date: 20120825
  Serious: Yes (Death, Hospitalization, Other)
  Sender: FDA-Public Use
  Company Number: TW-ABBOTT-12P-153-0911402-00

PATIENT
  Weight: 61.4 kg

DRUGS (16)
  1. NYSTATIN [Concomitant]
     Indication: PRODUCT USED FOR UNKNOWN INDICATION
  2. BROWN MIXTURE [Concomitant]
     Indication: PRODUCT USED FOR UNKNOWN INDICATION
     Route: 048
  3. ARCOXIA [Concomitant]
     Indication: PRODUCT USED FOR UNKNOWN INDICATION
     Dosage: AS REQUIRED
     Route: 048
  4. PLAVIX [Concomitant]
     Indication: PRODUCT USED FOR UNKNOWN INDICATION
     Route: 048
  5. LERCANIDIPINE [Concomitant]
     Indication: PRODUCT USED FOR UNKNOWN INDICATION
     Route: 048
  6. FOLIC ACID [Concomitant]
     Indication: PRODUCT USED FOR UNKNOWN INDICATION
     Dosage: VPP
     Route: 048
  7. ATIVAN [Concomitant]
     Indication: PRODUCT USED FOR UNKNOWN INDICATION
     Dosage: AT NIGHT
     Route: 048
  8. CYPROHEPTADINE HCL [Concomitant]
     Indication: PRODUCT USED FOR UNKNOWN INDICATION
     Route: 048
  9. VITAMIN B-12 [Concomitant]
     Indication: PRODUCT USED FOR UNKNOWN INDICATION
     Route: 048
  10. DELCOPAN [Concomitant]
     Indication: PRODUCT USED FOR UNKNOWN INDICATION
     Dosage: 1 TABLET NIGHTLY
     Route: 048
  11. HUMIRA [Suspect]
     Indication: RHEUMATOID ARTHRITIS
     Dates: start: 20111017, end: 20120301
  12. ICHDERM [Concomitant]
     Indication: PRODUCT USED FOR UNKNOWN INDICATION
     Dosage: 50MG/G (5%) 15G TUB 2 IN 1 DAY
  13. RIFATER [Concomitant]
     Indication: PRODUCT USED FOR UNKNOWN INDICATION
     Dosage: QDAC
     Route: 048
  14. ETHAMBUTOL HYDROCHLORIDE [Concomitant]
     Indication: PRODUCT USED FOR UNKNOWN INDICATION
     Dosage: QDCC 3 TAB
     Route: 048
  15. NEURONTIN [Concomitant]
     Indication: PRODUCT USED FOR UNKNOWN INDICATION
     Route: 048
  16. MEPTIN [Concomitant]
     Indication: PRODUCT USED FOR UNKNOWN INDICATION
     Route: 048

REACTIONS (22)
  - TACHYPNOEA [None]
  - OCCULT BLOOD [None]
  - PULMONARY TUBERCULOSIS [None]
  - OXYGEN SATURATION DECREASED [None]
  - PYREXIA [None]
  - NEGATIVE THOUGHTS [None]
  - LYMPH NODE CALCIFICATION [None]
  - HEADACHE [None]
  - LYMPHADENOPATHY [None]
  - PNEUMONIA [None]
  - PLEURAL EFFUSION [None]
  - MALAISE [None]
  - CARDIAC ARREST [None]
  - WHEEZING [None]
  - CHOLELITHIASIS [None]
  - FAECES DISCOLOURED [None]
  - CHROMATURIA [None]
  - PRURITUS [None]
  - DEPRESSED MOOD [None]
  - NODULE [None]
  - COUGH [None]
  - RENAL CYST [None]
